FAERS Safety Report 6171267-7 (Version None)
Quarter: 2009Q2

REPORT INFORMATION
  Report Type: 
  Country: None (occurrence: None)
  Receive Date: 20090428
  Receipt Date: 20090428
  Transmission Date: 20091009
  Serious: Yes (Other)
  Sender: FDA-Public Use
  Company Number: None

PATIENT
  Age: 49 Year
  Sex: Female
  Weight: 81.6475 kg

DRUGS (1)
  1. LEVAQUIN [Suspect]
     Indication: CHRONIC SINUSITIS
     Dosage: 1 TABLET DAILY PO, DAYS
     Route: 048
     Dates: start: 20090417, end: 20090423

REACTIONS (10)
  - ABSCESS [None]
  - DIPLOPIA [None]
  - DIZZINESS [None]
  - FACIAL PALSY [None]
  - HEADACHE [None]
  - INSOMNIA [None]
  - MYDRIASIS [None]
  - OPTIC NERVE DISORDER [None]
  - ORAL DISORDER [None]
  - SINUS DISORDER [None]
